FAERS Safety Report 6543557-7 (Version None)
Quarter: 2010Q1

REPORT INFORMATION
  Report Type: 
  Country: None (occurrence: None)
  Receive Date: 20100115
  Receipt Date: 20100108
  Transmission Date: 20100710
  Serious: Yes (Other)
  Sender: FDA-Public Use
  Company Number: 2010SP002224

PATIENT
  Age: 62 Year
  Sex: Male
  Weight: 89 kg

DRUGS (2)
  1. TEMOZOLOMIDE [Suspect]
     Indication: METASTATIC MALIGNANT MELANOMA
     Dates: start: 20091112, end: 20091118
  2. ABT-888 (BLINDED) (INVESTIGATIONAL DRUG) [Suspect]
     Indication: METASTATIC MALIGNANT MELANOMA
     Dosage: ; PO
     Route: 048
     Dates: start: 20091112, end: 20091118

REACTIONS (1)
  - DEEP VEIN THROMBOSIS [None]
